FAERS Safety Report 5384906-5 (Version None)
Quarter: 2007Q3

REPORT INFORMATION
  Report Type: 
  Country: None (occurrence: None)
  Receive Date: 20070711
  Receipt Date: 20070703
  Transmission Date: 20080115
  Serious: Yes (Other)
  Sender: FDA-Public Use
  Company Number: CH-ABBOTT-07P-151-0373494-00

PATIENT
  Age: 83 Year
  Sex: Female

DRUGS (11)
  1. DEPAKENE [Suspect]
     Indication: EPILEPSY
     Route: 048
     Dates: start: 20061101
  2. PIPERACILLIN AND TAZOBACTAM [Interacting]
     Indication: PNEUMONIA BACTERIAL
     Route: 041
     Dates: start: 20070112, end: 20070122
  3. TORSEMIDE [Suspect]
     Indication: CARDIAC FAILURE CONGESTIVE
     Route: 048
     Dates: start: 20070110, end: 20070116
  4. SODIUM PICOSULFATE [Suspect]
     Indication: CONSTIPATION
     Route: 048
  5. ACENOCOUMAROL [Concomitant]
     Indication: ATRIAL FIBRILLATION
     Route: 048
  6. ACENOCOUMAROL [Concomitant]
     Indication: CARDIAC FLUTTER
  7. METOPROLOL TARTRATE [Concomitant]
     Indication: HYPERTENSION
     Route: 048
     Dates: start: 20061217
  8. LISINOPRIL [Concomitant]
     Indication: CARDIAC FAILURE CONGESTIVE
     Route: 048
     Dates: start: 20061217
  9. PRAVASTATIN SODIUM [Concomitant]
     Indication: HYPERLIPIDAEMIA
     Route: 048
     Dates: start: 20061216, end: 20061222
  10. ESOMEPRAZOLE MAGNESIUM [Concomitant]
     Indication: DRUG USE FOR UNKNOWN INDICATION
     Route: 048
     Dates: start: 20061216, end: 20061221
  11. ZOLPIDEM TARTRATE [Concomitant]
     Indication: INSOMNIA
     Route: 048
     Dates: start: 20061218

REACTIONS (6)
  - ASPIRATION [None]
  - DRUG INEFFECTIVE [None]
  - DRUG INTERACTION [None]
  - GRAND MAL CONVULSION [None]
  - HYPOKALAEMIA [None]
  - HYPOTONIA [None]
